FAERS Safety Report 24147418 (Version 1)
Quarter: 2024Q3

REPORT INFORMATION
  Report Type: Report from Study
  Country: CA (occurrence: CA)
  Receive Date: 20240729
  Receipt Date: 20240729
  Transmission Date: 20241017
  Serious: Yes (Other)
  Sender: BIOCON
  Company Number: CA-BIOCON BIOLOGICS LIMITED-BBL2024005477

PATIENT

DRUGS (1)
  1. HULIO [Suspect]
     Active Substance: ADALIMUMAB-FKJP
     Indication: Crohn^s disease
     Dosage: 40 MILLIGRAM, QW, SOLUTION
     Route: 058

REACTIONS (4)
  - Inflammatory bowel disease [Unknown]
  - Inflammation [Unknown]
  - Diverticulitis [Unknown]
  - Off label use [Unknown]
